FAERS Safety Report 14341482 (Version 2)
Quarter: 2018Q1

REPORT INFORMATION
  Report Type: Report from Study
  Country: BR (occurrence: BR)
  Receive Date: 20180102
  Receipt Date: 20180110
  Transmission Date: 20180509
  Serious: Yes (Hospitalization)
  Sender: FDA-Public Use
  Company Number: BR-B.I. PHARMACEUTICALS,INC./RIDGEFIELD-2016-BI-56667BR

PATIENT
  Age: 63 Year
  Sex: Female
  Weight: 73 kg

DRUGS (15)
  1. POTASSIUM CITRATE. [Concomitant]
     Active Substance: POTASSIUM CITRATE
     Indication: RENAL DISORDER
     Route: 048
     Dates: start: 2011
  2. POTASSIUM CITRATE. [Concomitant]
     Active Substance: POTASSIUM CITRATE
     Indication: PROPHYLAXIS
  3. OFEV [Suspect]
     Active Substance: NINTEDANIB
     Route: 048
     Dates: start: 201610
  4. OFEV [Suspect]
     Active Substance: NINTEDANIB
     Route: 048
     Dates: start: 201701, end: 20170110
  5. DRAMAMINE [Suspect]
     Active Substance: DIMENHYDRINATE
     Indication: PROPHYLAXIS
     Route: 065
  6. OLCADIL [Concomitant]
     Active Substance: CLOXAZOLAM
     Route: 048
     Dates: start: 1997
  7. AMITRIPTILA [Concomitant]
     Route: 048
     Dates: start: 1998
  8. OFEV [Suspect]
     Active Substance: NINTEDANIB
     Route: 048
     Dates: start: 201711
  9. OLCADIL [Concomitant]
     Active Substance: CLOXAZOLAM
     Indication: DRUG THERAPY
     Route: 048
     Dates: start: 1999
  10. AMITRIPTILA [Concomitant]
     Indication: SLEEP DISORDER
     Route: 048
     Dates: start: 1992
  11. OFEV [Suspect]
     Active Substance: NINTEDANIB
     Route: 048
     Dates: start: 20170111
  12. OFEV [Suspect]
     Active Substance: NINTEDANIB
     Indication: IDIOPATHIC PULMONARY FIBROSIS
     Route: 048
     Dates: start: 20160803, end: 20161112
  13. OFEV [Suspect]
     Active Substance: NINTEDANIB
     Route: 048
     Dates: start: 201705
  14. OLCADIL [Concomitant]
     Active Substance: CLOXAZOLAM
     Indication: SLEEP DISORDER THERAPY
     Route: 048
     Dates: start: 1992
  15. AMITRIPTILA [Concomitant]
     Route: 048
     Dates: start: 1999

REACTIONS (42)
  - Vomiting [Recovered/Resolved]
  - Pharyngitis [Recovered/Resolved]
  - Vomiting [Not Recovered/Not Resolved]
  - Dizziness [Recovered/Resolved]
  - Weight decreased [Not Recovered/Not Resolved]
  - Diarrhoea [Recovered/Resolved]
  - Diarrhoea [Not Recovered/Not Resolved]
  - Blood pressure increased [Not Recovered/Not Resolved]
  - Influenza [Recovered/Resolved]
  - Pain in extremity [Not Recovered/Not Resolved]
  - Hypertension [Not Recovered/Not Resolved]
  - Vomiting [Recovered/Resolved]
  - Immune system disorder [Recovered/Resolved]
  - Fatigue [Not Recovered/Not Resolved]
  - Motion sickness [Not Recovered/Not Resolved]
  - Cholelithiasis [Recovered/Resolved]
  - Vertigo [Recovered/Resolved]
  - Asthenia [Not Recovered/Not Resolved]
  - Heart rate irregular [Not Recovered/Not Resolved]
  - Asthenia [Not Recovered/Not Resolved]
  - Malaise [Not Recovered/Not Resolved]
  - Somnolence [Not Recovered/Not Resolved]
  - Abdominal pain [Recovered/Resolved]
  - Abdominal discomfort [Not Recovered/Not Resolved]
  - Dysgeusia [Not Recovered/Not Resolved]
  - Abdominal pain upper [Not Recovered/Not Resolved]
  - Diarrhoea [Not Recovered/Not Resolved]
  - Diarrhoea [Not Recovered/Not Resolved]
  - Weight decreased [Not Recovered/Not Resolved]
  - Abdominal discomfort [Not Recovered/Not Resolved]
  - Abdominal pain upper [Recovered/Resolved]
  - Diarrhoea [Not Recovered/Not Resolved]
  - Lung infection [Unknown]
  - Dizziness [Not Recovered/Not Resolved]
  - Blood pressure abnormal [Recovered/Resolved]
  - Nausea [Not Recovered/Not Resolved]
  - Pain in extremity [Recovered/Resolved]
  - Abdominal pain [Not Recovered/Not Resolved]
  - Abdominal discomfort [Recovered/Resolved]
  - Syncope [Not Recovered/Not Resolved]
  - Blood pressure fluctuation [Recovered/Resolved]
  - Oropharyngeal pain [Recovered/Resolved]

NARRATIVE: CASE EVENT DATE: 201608
